FAERS Safety Report 25005513 (Version 1)
Quarter: 2025Q1

REPORT INFORMATION
  Report Type: Spontaneous
  Country: FR (occurrence: FR)
  Receive Date: 20250224
  Receipt Date: 20250224
  Transmission Date: 20250409
  Serious: Yes (Other)
  Sender: BAUSCH AND LOMB
  Company Number: FR-NORGINE LIMITED-NOR202403647

PATIENT
  Age: 83 Year
  Sex: Female
  Weight: 47 kg

DRUGS (3)
  1. MOVIPREP [Suspect]
     Active Substance: ASCORBIC ACID\POLYETHYLENE GLYCOL 3350\POTASSIUM CHLORIDE\SODIUM ASCORBATE\SODIUM CHLORIDE\SODIUM SU
     Indication: Bowel preparation
     Route: 048
     Dates: start: 20241218, end: 20241218
  2. LIPTRUZET [Concomitant]
     Active Substance: ATORVASTATIN CALCIUM\EZETIMIBE
     Indication: Hypercholesterolaemia
     Dosage: 1 DOSAGE FORM, QD (YEARS AGO)
     Route: 065
  3. STEROGYL [Concomitant]
     Active Substance: ERGOCALCIFEROL
     Indication: Product used for unknown indication

REACTIONS (7)
  - Somnolence [Recovering/Resolving]
  - Muscular weakness [Recovering/Resolving]
  - Drug intolerance [Unknown]
  - Vomiting [Not Recovered/Not Resolved]
  - Erythema [Recovered/Resolved]
  - Nausea [Recovering/Resolving]
  - Drug effect less than expected [Unknown]

NARRATIVE: CASE EVENT DATE: 20241201
